FAERS Safety Report 14635818 (Version 2)
Quarter: 2018Q2

REPORT INFORMATION
  Report Type: Spontaneous
  Country: US (occurrence: US)
  Receive Date: 20180314
  Receipt Date: 20180406
  Transmission Date: 20180711
  Serious: Yes (Hospitalization)
  Sender: FDA-Public Use
  Company Number: US-JNJFOC-20180308476

PATIENT
  Sex: Female
  Weight: 120.2 kg

DRUGS (1)
  1. DURAGESIC [Suspect]
     Active Substance: FENTANYL
     Indication: PAIN
     Route: 062
     Dates: start: 2006

REACTIONS (13)
  - Withdrawal syndrome [Unknown]
  - Wrong technique in product usage process [Unknown]
  - Inappropriate schedule of drug administration [Unknown]
  - Pharyngeal abscess [Unknown]
  - Headache [Unknown]
  - Pneumonia [Unknown]
  - Drug ineffective [Unknown]
  - Neck pain [Unknown]
  - Angina pectoris [Unknown]
  - Bone disorder [Unknown]
  - Arthralgia [Unknown]
  - Drug dose omission [Unknown]
  - Product packaging quantity issue [Unknown]
